FAERS Safety Report 8577328-7 (Version None)
Quarter: 2012Q3

REPORT INFORMATION
  Report Type: 
  Country: None (occurrence: None)
  Receive Date: 20120807
  Receipt Date: 20120718
  Transmission Date: 20120928
  Serious: No
  Sender: FDA-Public Use
  Company Number: US-ASTRAZENECA-2012SE11653

PATIENT
  Age: 57 Year
  Sex: Male
  Weight: 86.2 kg

DRUGS (5)
  1. ULTRAM [Concomitant]
     Route: 048
  2. PRILOSEC [Suspect]
     Route: 048
  3. PRILOSEC OTC [Suspect]
     Route: 048
  4. NEXIUM [Suspect]
     Route: 048
  5. VICODIN [Concomitant]
     Indication: PAIN
     Route: 048

REACTIONS (6)
  - ULCER [None]
  - PHARYNGEAL EROSION [None]
  - PAIN [None]
  - DRUG DOSE OMISSION [None]
  - ARTHRALGIA [None]
  - MALAISE [None]
